FAERS Safety Report 5442339-7 (Version None)
Quarter: 2007Q3

REPORT INFORMATION
  Report Type: 
  Country: None (occurrence: None)
  Receive Date: 20070904
  Receipt Date: 20070823
  Transmission Date: 20080115
  Serious: Yes (Other)
  Sender: FDA-Public Use
  Company Number: US-PFIZER INC-2007071525

PATIENT
  Age: 83 Year
  Sex: Female

DRUGS (4)
  1. DILANTIN [Suspect]
     Indication: CONVULSION
  2. ARICEPT [Interacting]
     Indication: DEMENTIA
  3. AMARYL [Concomitant]
  4. ASPIRIN [Concomitant]

REACTIONS (4)
  - ANTICONVULSANT DRUG LEVEL INCREASED [None]
  - CONVULSION [None]
  - DRUG INTERACTION [None]
  - MUSCULOSKELETAL STIFFNESS [None]
